FAERS Safety Report 10249886 (Version 2)
Quarter: 2014Q2

REPORT INFORMATION
  Report Type: Report from Study
  Country: US (occurrence: US)
  Receive Date: 20140620
  Receipt Date: 20140620
  Transmission Date: 20141212
  Serious: Yes (Hospitalization)
  Sender: FDA-Public Use
  Company Number: US-TEVA-484437USA

PATIENT
  Sex: Female

DRUGS (2)
  1. COPAXONE [Suspect]
     Indication: MULTIPLE SCLEROSIS
     Dates: start: 20140509, end: 2014
  2. COPAXONE [Suspect]
     Dosage: 2 DOSES AFTER HER HOSPITALIZATION
     Dates: start: 2014, end: 2014

REACTIONS (5)
  - Nausea [Unknown]
  - Vomiting [Unknown]
  - Pyrexia [Unknown]
  - Dizziness [Unknown]
  - Drug hypersensitivity [Unknown]
